FAERS Safety Report 7720577-8 (Version None)
Quarter: 2011Q3

REPORT INFORMATION
  Report Type: 
  Country: None (occurrence: None)
  Receive Date: 20110825
  Receipt Date: 20110810
  Transmission Date: 20111222
  Serious: Yes (Life-Threatening, Hospitalization)
  Sender: FDA-Public Use
  Company Number: 15963911

PATIENT
  Age: 81 Year
  Sex: Female

DRUGS (8)
  1. DOLIPRANE (ACETAMINOPHEN) [Concomitant]
  2. COUMADIN [Suspect]
     Indication: MYOCARDIAL ISCHAEMIA
  3. ATACAND [Concomitant]
  4. LORAZEPAM [Concomitant]
  5. EXACYL (TRANEXAMIC ACID) [Concomitant]
  6. XALATAN [Concomitant]
  7. DETENSIEL (BISOPROLOL HEMIFUMARATE) [Concomitant]
  8. LASIX [Concomitant]

REACTIONS (7)
  - GASTROINTESTINAL HAEMORRHAGE [None]
  - ABDOMINAL PAIN UPPER [None]
  - HYPOTENSION [None]
  - INTERNATIONAL NORMALISED RATIO INCREASED [None]
  - HAEMORRHOIDAL HAEMORRHAGE [None]
  - HAEMOGLOBIN DECREASED [None]
  - RED BLOOD CELL COUNT DECREASED [None]
